FAERS Safety Report 5404398-7 (Version None)
Quarter: 2007Q3

REPORT INFORMATION
  Report Type: 
  Country: None (occurrence: None)
  Receive Date: 20070802
  Receipt Date: 20070726
  Transmission Date: 20080115
  Serious: Yes (Death)
  Sender: FDA-Public Use
  Company Number: DE-SANOFI-SYNTHELABO-A01200708136

PATIENT
  Age: 55 Year
  Sex: Male

DRUGS (3)
  1. ISCOVER [Suspect]
     Indication: STENT PLACEMENT
     Dosage: UNK
     Route: 048
     Dates: start: 20060101, end: 20070301
  2. PACLITAXEL [Suspect]
     Indication: STENT PLACEMENT
     Dosage: UNK
     Route: 065
     Dates: start: 20060101
  3. ASPIRIN [Suspect]
     Indication: STENT PLACEMENT
     Dosage: UNK
     Route: 065
     Dates: start: 20060101

REACTIONS (1)
  - SUDDEN DEATH [None]
